FAERS Safety Report 23939808 (Version 1)
Quarter: 2024Q2

REPORT INFORMATION
  Report Type: Report from Study
  Country: US (occurrence: US)
  Receive Date: 20240605
  Receipt Date: 20240605
  Transmission Date: 20240715
  Serious: No
  Sender: FDA-Public Use
  Company Number: US-ACADIA PHARMACEUTICALS INC.-ACA-2024-PIM-002394

PATIENT
  Age: 64 Year
  Sex: Female

DRUGS (8)
  1. NUPLAZID [Suspect]
     Active Substance: PIMAVANSERIN TARTRATE
     Indication: Parkinson^s disease
     Dosage: 34 MILLIGRAM, QD
     Route: 048
     Dates: start: 202403
  2. NUPLAZID [Suspect]
     Active Substance: PIMAVANSERIN TARTRATE
     Indication: Dystonia
  3. NUPLAZID [Suspect]
     Active Substance: PIMAVANSERIN TARTRATE
     Indication: Parkinson^s disease psychosis
  4. MOUNJARO [Suspect]
     Active Substance: TIRZEPATIDE
  5. JANUVIA [Concomitant]
     Active Substance: SITAGLIPTIN PHOSPHATE
  6. RYTARY [Concomitant]
     Active Substance: CARBIDOPA\LEVODOPA
  7. RIVASTIGMINE [Concomitant]
     Active Substance: RIVASTIGMINE
  8. PIMAVANSERIN [Concomitant]
     Active Substance: PIMAVANSERIN

REACTIONS (3)
  - Cognitive disorder [Recovering/Resolving]
  - Drug interaction [Unknown]
  - Hallucination [Unknown]

NARRATIVE: CASE EVENT DATE: 20240401
